FAERS Safety Report 15231047 (Version 1)
Quarter: 2018Q3

REPORT INFORMATION
  Report Type: Spontaneous
  Country: BE (occurrence: IT)
  Receive Date: 20180802
  Receipt Date: 20180802
  Transmission Date: 20181010
  Serious: Yes (Other)
  Sender: FDA-Public Use
  Company Number: BE-PFIZER INC-2018304857

PATIENT
  Age: 56 Year
  Sex: Female

DRUGS (7)
  1. PACLITAXEL. [Suspect]
     Active Substance: PACLITAXEL
     Dosage: 155 MG/M2, UNK (3 H INFUSION)
  2. GEMCITABINE HYDROCHLORIDE. [Concomitant]
     Active Substance: GEMCITABINE HYDROCHLORIDE
     Indication: OVARIAN CANCER
     Dosage: 1250 MG/M2, 1X/DAY (ON DAY 1, 8 AND 15 OF A 28?DAY COURSE)
     Dates: start: 200009
  3. CARBOPLATIN. [Concomitant]
     Active Substance: CARBOPLATIN
     Dosage: (CBCA?AUC5, 2 COURSES)
  4. PACLITAXEL. [Suspect]
     Active Substance: PACLITAXEL
     Dosage: 135 MG/M2, UNK (3H INFUSION)
  5. PACLITAXEL. [Suspect]
     Active Substance: PACLITAXEL
     Indication: OVARIAN CANCER
     Dosage: 175 MG/M2, UNK (DAY 1, 3H INFUSION)
  6. PACLITAXEL. [Suspect]
     Active Substance: PACLITAXEL
     Dosage: 175 MG/M2, UNK
  7. PACLITAXEL. [Suspect]
     Active Substance: PACLITAXEL
     Dosage: 195 MG/M2, UNK (3H INFUSION

REACTIONS (1)
  - Systemic scleroderma [Recovering/Resolving]
